FAERS Safety Report 25625623 (Version 1)
Quarter: 2025Q3

REPORT INFORMATION
  Report Type: Spontaneous
  Country: CA (occurrence: CA)
  Receive Date: 20250731
  Receipt Date: 20250731
  Transmission Date: 20251020
  Serious: Yes (Other)
  Sender: Unknown Manufacturer
  Company Number: CA-862174955-ML2025-03802

PATIENT
  Sex: Male

DRUGS (1)
  1. RANOLAZINE [Suspect]
     Active Substance: RANOLAZINE
     Indication: Angina pectoris
     Dosage: DOSAGE:?500MG TWICE DAILY
     Route: 048
     Dates: start: 20250714

REACTIONS (7)
  - Angina pectoris [Unknown]
  - Disorientation [Unknown]
  - Balance disorder [Unknown]
  - Dizziness [Unknown]
  - Hypoaesthesia [Unknown]
  - Dry mouth [Unknown]
  - Dyspnoea [Unknown]
